FAERS Safety Report 18067961 (Version 14)
Quarter: 2021Q2

REPORT INFORMATION
  Report Type: Spontaneous
  Country: AR (occurrence: AR)
  Receive Date: 20200724
  Receipt Date: 20210519
  Transmission Date: 20210717
  Serious: Yes (Hospitalization, Other)
  Sender: FDA-Public Use
  Company Number: AR-MYLANLABS-2020M1066682

PATIENT
  Age: 19 Year
  Sex: Female

DRUGS (7)
  1. LAPENAX [Suspect]
     Active Substance: CLOZAPINE
     Indication: PRODUCT USED FOR UNKNOWN INDICATION
     Dosage: 400 MILLIGRAM, QD
     Dates: start: 20190912
  2. BIPERIDEN [Concomitant]
     Active Substance: BIPERIDEN
     Dosage: 2 MILLIGRAM
  3. TOPIRAMATE. [Concomitant]
     Active Substance: TOPIRAMATE
     Dosage: 300 MILLIGRAM, QD
  4. SODIUM VALPROATE [Concomitant]
     Active Substance: VALPROATE SODIUM
     Dosage: 750 MILLIGRAM
  5. LAPENAX [Suspect]
     Active Substance: CLOZAPINE
     Dosage: 350 MILLIGRAM, QD
  6. TOPIRAMATE. [Concomitant]
     Active Substance: TOPIRAMATE
     Dosage: 200 MILLIGRAM
  7. LORAZEPAM. [Concomitant]
     Active Substance: LORAZEPAM
     Dosage: 5 MILLIGRAM, QD

REACTIONS (8)
  - Neutropenia [Recovered/Resolved]
  - Lymphocyte count increased [Recovering/Resolving]
  - Leukopenia [Recovered/Resolved]
  - Red blood cell count decreased [Recovered/Resolved]
  - Intentional self-injury [Unknown]
  - Monocyte count increased [Not Recovered/Not Resolved]
  - Eosinophil count decreased [Not Recovered/Not Resolved]
  - Vitamin B12 deficiency [Unknown]

NARRATIVE: CASE EVENT DATE: 20200716
